FAERS Safety Report 21719103 (Version 1)
Quarter: 2022Q4

REPORT INFORMATION
  Report Type: Spontaneous
  Country: GB (occurrence: GB)
  Receive Date: 20221213
  Receipt Date: 20221213
  Transmission Date: 20230113
  Serious: Yes (Other)
  Sender: FDA-Public Use
  Company Number: GB-CELLTRION INC.-2022GB020722

PATIENT

DRUGS (1)
  1. INFLIXIMAB [Suspect]
     Active Substance: INFLIXIMAB
     Indication: Rheumatoid arthritis
     Dosage: REMSIMA (INFLIXIMAB) 120MG PRE-FILLED PEN
     Route: 058
     Dates: start: 202209, end: 202212

REACTIONS (1)
  - Neoplasm malignant [Unknown]
